FAERS Safety Report 7120867-6 (Version None)
Quarter: 2010Q4

REPORT INFORMATION
  Report Type: 
  Country: None (occurrence: None)
  Receive Date: 20101124
  Receipt Date: 20091221
  Transmission Date: 20110411
  Serious: No
  Sender: FDA-Public Use
  Company Number: US-PFIZER INC-2009283889

PATIENT
  Age: 54 Year
  Sex: Female
  Weight: 68 kg

DRUGS (4)
  1. TIKOSYN [Suspect]
     Indication: ATRIAL FIBRILLATION
     Dosage: 250 UG, 2X/DAY
  2. APPLE CIDER VINEGAR [Interacting]
  3. EVISTA [Concomitant]
  4. PROPRANOLOL [Concomitant]

REACTIONS (3)
  - ATRIAL FIBRILLATION [None]
  - FOOD INTERACTION [None]
  - HEART RATE IRREGULAR [None]
